FAERS Safety Report 22796404 (Version 2)
Quarter: 2025Q2

REPORT INFORMATION
  Report Type: Spontaneous
  Country: RO (occurrence: RO)
  Receive Date: 20230808
  Receipt Date: 20250430
  Transmission Date: 20250717
  Serious: Yes (Death)
  Sender: AUROBINDO
  Company Number: RO-SUN PHARMACEUTICAL INDUSTRIES LTD-2023RR-399932

PATIENT
  Weight: 3.1 kg

DRUGS (11)
  1. PANTOPRAZOLE [Suspect]
     Active Substance: PANTOPRAZOLE
     Indication: Product used for unknown indication
     Route: 065
  2. DOPAMINE [Suspect]
     Active Substance: DOPAMINE HYDROCHLORIDE
     Indication: Pulmonary hypertension
     Route: 042
  3. FENTANYL [Suspect]
     Active Substance: FENTANYL
     Indication: Product used for unknown indication
     Route: 065
  4. HYDROCORTISONE [Suspect]
     Active Substance: HYDROCORTISONE
     Indication: Product used for unknown indication
     Route: 065
  5. MORPHINE [Suspect]
     Active Substance: MORPHINE
     Indication: Product used for unknown indication
     Route: 065
  6. MIDAZOLAM [Suspect]
     Active Substance: MIDAZOLAM
     Indication: Product used for unknown indication
     Route: 065
  7. MILRINONE [Suspect]
     Active Substance: MILRINONE
     Indication: Pulmonary hypertension
     Route: 042
  8. ACETAMINOPHEN [Suspect]
     Active Substance: ACETAMINOPHEN
     Indication: Product used for unknown indication
     Route: 065
  9. SILDENAFIL [Suspect]
     Active Substance: SILDENAFIL
     Indication: Pulmonary hypertension
     Route: 042
  10. AMIKACIN [Concomitant]
     Active Substance: AMIKACIN
     Indication: Antibiotic therapy
     Route: 065
  11. Ampiplus [Concomitant]
     Indication: Antibiotic therapy
     Route: 065

REACTIONS (1)
  - Drug ineffective [Fatal]
